FAERS Safety Report 19746932 (Version 1)
Quarter: 2021Q3

REPORT INFORMATION
  Report Type: Spontaneous
  Country: US (occurrence: US)
  Receive Date: 20210826
  Receipt Date: 20210826
  Transmission Date: 20211014
  Serious: Yes (Other)
  Sender: FDA-Public Use
  Company Number: US-BLUEPRINT MEDICINES CORPORATION-SP-US-2021-001305

PATIENT
  Age: 66 Year
  Sex: Female

DRUGS (2)
  1. AYVAKIT [Suspect]
     Active Substance: AVAPRITINIB
     Indication: SYSTEMIC MASTOCYTOSIS
     Route: 048
     Dates: start: 20210714
  2. DICLOFENAC [Suspect]
     Active Substance: DICLOFENAC
     Indication: PRODUCT USED FOR UNKNOWN INDICATION
     Route: 065

REACTIONS (9)
  - Vision blurred [Not Recovered/Not Resolved]
  - Dyspnoea [Not Recovered/Not Resolved]
  - Disorientation [Not Recovered/Not Resolved]
  - Swelling face [Not Recovered/Not Resolved]
  - Fatigue [Not Recovered/Not Resolved]
  - Drug interaction [Not Recovered/Not Resolved]
  - Depressed mood [Not Recovered/Not Resolved]
  - Cognitive disorder [Not Recovered/Not Resolved]
  - Peripheral swelling [Not Recovered/Not Resolved]

NARRATIVE: CASE EVENT DATE: 20210803
